FAERS Safety Report 15004872 (Version 1)
Quarter: 2018Q2

REPORT INFORMATION
  Report Type: Spontaneous
  Country: GB (occurrence: GB)
  Receive Date: 20180613
  Receipt Date: 20180613
  Transmission Date: 20180711
  Serious: Yes (Death)
  Sender: FDA-Public Use
  Company Number: GB-US WORLDMEDS, LLC-USW201806-000898

PATIENT
  Age: 32 Year
  Sex: Male

DRUGS (6)
  1. CLONAZEPAM. [Suspect]
     Active Substance: CLONAZEPAM
     Indication: PRODUCT USED FOR UNKNOWN INDICATION
     Dates: start: 20171027
  2. HEROIN [Suspect]
     Active Substance: DIAMORPHINE
  3. ALCOHOL. [Suspect]
     Active Substance: ALCOHOL
  4. APOMORPHINE HYDROCHLORIDE [Suspect]
     Active Substance: APOMORPHINE HYDROCHLORIDE
     Indication: PRODUCT USED FOR UNKNOWN INDICATION
     Dates: start: 20171027
  5. CRACK COCAINE [Suspect]
     Active Substance: COCAINE
  6. PREGABALIN. [Suspect]
     Active Substance: PREGABALIN
     Indication: PRODUCT USED FOR UNKNOWN INDICATION
     Dates: start: 20171027

REACTIONS (6)
  - Drug interaction [Fatal]
  - Alcohol interaction [Fatal]
  - Intentional product misuse [Fatal]
  - Intentional overdose [Fatal]
  - Toxicity to various agents [Fatal]
  - Coma [Fatal]

NARRATIVE: CASE EVENT DATE: 20171027
